FAERS Safety Report 22070538 (Version 1)
Quarter: 2023Q1

REPORT INFORMATION
  Report Type: Spontaneous
  Country: JO (occurrence: JO)
  Receive Date: 20230307
  Receipt Date: 20230307
  Transmission Date: 20230417
  Serious: Yes (Hospitalization, Other)
  Sender: FDA-Public Use
  Company Number: JO-002147023-NVSC2023JO046083

PATIENT
  Age: 65 Year
  Sex: Male

DRUGS (2)
  1. CARBAMAZEPINE [Suspect]
     Active Substance: CARBAMAZEPINE
     Indication: Partial seizures
     Dosage: 800 MG IN MORNING, 600 MG IN EVENING
     Route: 065
  2. PHENOBARBITAL [Concomitant]
     Active Substance: PHENOBARBITAL
     Indication: Partial seizures
     Dosage: 64.8 MG, BID
     Route: 065

REACTIONS (2)
  - Asterixis [Recovered/Resolved]
  - Anticonvulsant drug level above therapeutic [Recovered/Resolved]
